FAERS Safety Report 21396119 (Version 1)
Quarter: 2022Q3

REPORT INFORMATION
  Report Type: Spontaneous
  Country: US (occurrence: None)
  Receive Date: 20220928
  Receipt Date: 20220928
  Transmission Date: 20221026
  Serious: No
  Sender: FDA-Public Use
  Company Number: None

PATIENT
  Sex: Female

DRUGS (1)
  1. ENBREL [Suspect]
     Active Substance: ETANERCEPT
     Indication: Rheumatoid arthritis
     Dosage: 50MG/ML EVERY 7 DAYS UNDER THE SKIN?
     Route: 058
     Dates: start: 20220827

REACTIONS (6)
  - Therapy non-responder [None]
  - Diarrhoea [None]
  - Dry skin [None]
  - Skin exfoliation [None]
  - Productive cough [None]
  - Cough [None]
